FAERS Safety Report 17697611 (Version 2)
Quarter: 2021Q1

REPORT INFORMATION
  Report Type: Spontaneous
  Country: US (occurrence: US)
  Receive Date: 20200423
  Receipt Date: 20210115
  Transmission Date: 20210419
  Serious: Yes (Hospitalization, Other)
  Sender: FDA-Public Use
  Company Number: US-ELI_LILLY_AND_COMPANY-US202004005123

PATIENT
  Sex: Male

DRUGS (1)
  1. HUMALOG [Suspect]
     Active Substance: INSULIN LISPRO
     Indication: TYPE 1 DIABETES MELLITUS
     Dosage: 115 U, DAILY (UPTO 115 UNITS DAILY, BUT IT VARIES)
     Route: 065

REACTIONS (3)
  - Localised infection [Unknown]
  - Blood glucose increased [Unknown]
  - Osteomyelitis [Unknown]
